FAERS Safety Report 7401710-4 (Version None)
Quarter: 2011Q1

REPORT INFORMATION
  Report Type: 
  Country: None (occurrence: None)
  Receive Date: 20110329
  Receipt Date: 20110322
  Transmission Date: 20110831
  Serious: Yes (Hospitalization)
  Sender: FDA-Public Use
  Company Number: CIP11000663

PATIENT
  Age: 66 Year
  Sex: Male

DRUGS (1)
  1. ACTONEL [Suspect]
     Dosage: 150 MG ONCE MONTHLY, ORAL
     Route: 048
     Dates: start: 20091106, end: 20101201

REACTIONS (5)
  - WHITE BLOOD CELL COUNT INCREASED [None]
  - PYREXIA [None]
  - CIRCULATORY COLLAPSE [None]
  - EOSINOPHIL COUNT INCREASED [None]
  - NEUTROPHILIA [None]
